FAERS Safety Report 4665699-3 (Version None)
Quarter: 2005Q2

REPORT INFORMATION
  Report Type: 
  Country: None (occurrence: None)
  Receive Date: 20050517
  Receipt Date: 20050329
  Transmission Date: 20051028
  Serious: No
  Sender: FDA-Public Use
  Company Number: S05-USA-01750-01

PATIENT
  Age: 79 Year
  Sex: Male

DRUGS (4)
  1. NAMENDA [Suspect]
     Indication: MEMORY IMPAIRMENT
     Dosage: 5 MG QD PO
     Route: 048
     Dates: start: 20050301, end: 20050301
  2. NAMENDA [Suspect]
     Indication: MEMORY IMPAIRMENT
     Dosage: 5 MG BID PO
     Route: 048
     Dates: start: 20050301, end: 20050301
  3. NAMENDA [Suspect]
     Indication: MEMORY IMPAIRMENT
     Dosage: 15 MG QD PO
     Route: 048
     Dates: start: 20050301
  4. ATENOLOL [Concomitant]

REACTIONS (2)
  - ERYTHEMA [None]
  - SKIN CHAPPED [None]
